FAERS Safety Report 4444954-6 (Version None)
Quarter: 2004Q3

REPORT INFORMATION
  Report Type: 
  Country: None (occurrence: None)
  Receive Date: 20040909
  Receipt Date: 20040830
  Transmission Date: 20050211
  Serious: Yes (Life-Threatening)
  Sender: FDA-Public Use
  Company Number: FR-ROCHE-378966

PATIENT
  Age: 44 Year
  Sex: Female
  Weight: 66 kg

DRUGS (6)
  1. PEGASYS [Suspect]
     Route: 058
     Dates: start: 20030927, end: 20040610
  2. REBETOL [Suspect]
     Route: 048
     Dates: start: 20030927, end: 20040610
  3. NOCTRAN [Concomitant]
  4. LYSANXIA [Concomitant]
  5. TERCIAN [Concomitant]
  6. EFFEXOR [Concomitant]

REACTIONS (21)
  - BONE MARROW DEPRESSION [None]
  - CONFUSIONAL STATE [None]
  - COUGH [None]
  - DYSPHAGIA [None]
  - DYSPHONIA [None]
  - GENERAL PHYSICAL HEALTH DETERIORATION [None]
  - HEADACHE [None]
  - HEPATITIS GRANULOMATOUS [None]
  - LICHEN PLANUS [None]
  - LYMPHADENOPATHY [None]
  - LYMPHOPENIA [None]
  - MEMORY IMPAIRMENT [None]
  - NIGHT SWEATS [None]
  - PAIN [None]
  - PALPITATIONS [None]
  - PYREXIA [None]
  - RASH [None]
  - SINUS TACHYCARDIA [None]
  - SLEEP DISORDER [None]
  - TUBERCULIN TEST POSITIVE [None]
  - WEIGHT DECREASED [None]
